FAERS Safety Report 4647736-5 (Version None)
Quarter: 2005Q2

REPORT INFORMATION
  Report Type: 
  Country: None (occurrence: None)
  Receive Date: 20050428
  Receipt Date: 20050421
  Transmission Date: 20051028
  Serious: Yes (Hospitalization, Other)
  Sender: FDA-Public Use
  Company Number: PHEH2005US04618

PATIENT
  Age: 65 Year
  Sex: Female

DRUGS (2)
  1. GLEEVEC [Suspect]
     Indication: CHRONIC MYELOID LEUKAEMIA
     Dosage: 400 MG, QD
     Route: 048
     Dates: start: 20010101
  2. GLEEVEC [Suspect]
     Dosage: 200 MG, QD
     Route: 048

REACTIONS (10)
  - CARDIAC FAILURE [None]
  - DYSPNOEA [None]
  - FLUID OVERLOAD [None]
  - HEPATIC ENZYME ABNORMAL [None]
  - HEPATITIS [None]
  - NAUSEA [None]
  - PERIORBITAL OEDEMA [None]
  - PLATELET COUNT INCREASED [None]
  - VOMITING [None]
  - WHITE BLOOD CELL COUNT INCREASED [None]
